FAERS Safety Report 12252357 (Version 1)
Quarter: 2016Q2

REPORT INFORMATION
  Report Type: Spontaneous
  Country: US (occurrence: None)
  Receive Date: 20160408
  Receipt Date: 20160408
  Transmission Date: 20160815
  Serious: No
  Sender: FDA-Public Use
  Company Number: None

PATIENT
  Age: 61 Year
  Sex: Female

DRUGS (6)
  1. FOLIC ACID. [Concomitant]
     Active Substance: FOLIC ACID
  2. OCUVITE [Concomitant]
     Active Substance: VITAMINS
  3. MULTIVITAMIN [Concomitant]
     Active Substance: VITAMINS
  4. PROPRANOLOL [Concomitant]
     Active Substance: PROPRANOLOL\PROPRANOLOL HYDROCHLORIDE
  5. VIVITROL [Suspect]
     Active Substance: NALTREXONE
     Indication: ALCOHOL ABUSE
     Route: 030
  6. FISH OIL [Concomitant]
     Active Substance: FISH OIL

REACTIONS (1)
  - Injection site necrosis [None]

NARRATIVE: CASE EVENT DATE: 20160308
